FAERS Safety Report 5024289-3 (Version None)
Quarter: 2006Q2

REPORT INFORMATION
  Report Type: 
  Country: None (occurrence: None)
  Receive Date: 20060606
  Receipt Date: 20060524
  Transmission Date: 20061013
  Serious: Yes (Hospitalization, Other)
  Sender: FDA-Public Use
  Company Number: HQWYE408320MAR06

PATIENT
  Age: 70 Year
  Sex: Male
  Weight: 91.8 kg

DRUGS (4)
  1. NEORAL [Suspect]
     Indication: PROPHYLAXIS AGAINST TRANSPLANT REJECTION
     Dosage: 50 MG 2X PER 1 DAY, ORAL
     Route: 048
     Dates: start: 20060217, end: 20060401
  2. NEORAL [Suspect]
     Indication: PROPHYLAXIS AGAINST TRANSPLANT REJECTION
     Dosage: 50 MG 2X PER 1 DAY, ORAL
     Route: 048
     Dates: start: 20060407
  3. CELLCEPT [Concomitant]
  4. PREDNISONE TAB [Concomitant]

REACTIONS (3)
  - COLON CANCER [None]
  - COLONIC POLYP [None]
  - PROCEDURAL COMPLICATION [None]
